FAERS Safety Report 9121401 (Version 1)
Quarter: 2013Q1

REPORT INFORMATION
  Report Type: Report from Study
  Country: CA (occurrence: CA)
  Receive Date: 20130227
  Receipt Date: 20130227
  Transmission Date: 20140127
  Serious: Yes (Hospitalization, Other)
  Sender: FDA-Public Use
  Company Number: CA-ABBOTT-12P-028-1000612-00

PATIENT
  Sex: Male

DRUGS (1)
  1. LUPRON DEPOT [Suspect]
     Indication: PROSTATE CANCER
     Dosage: 4 MONTHS DEPOT
     Route: 030
     Dates: start: 2003

REACTIONS (4)
  - Delirium [Unknown]
  - Confusional state [Unknown]
  - Narcissistic personality disorder [Unknown]
  - Major depression [Unknown]
